FAERS Safety Report 11381872 (Version 2)
Quarter: 2015Q3

REPORT INFORMATION
  Report Type: Spontaneous
  Country: JP (occurrence: JP)
  Receive Date: 20150814
  Receipt Date: 20150820
  Transmission Date: 20151125
  Serious: Yes (Other)
  Sender: FDA-Public Use
  Company Number: JP-ABBVIE-15P-087-1445459-00

PATIENT
  Sex: Female

DRUGS (1)
  1. LEUPLIN SR [Suspect]
     Active Substance: LEUPROLIDE ACETATE
     Indication: BREAST CANCER FEMALE
     Dosage: 11.25 MG, Q3MONTHS
     Route: 058

REACTIONS (1)
  - Pancytopenia [Unknown]
